FAERS Safety Report 6871274-2 (Version None)
Quarter: 2010Q3

REPORT INFORMATION
  Report Type: 
  Country: None (occurrence: None)
  Receive Date: 20100723
  Receipt Date: 20100714
  Transmission Date: 20110219
  Serious: Yes (Hospitalization)
  Sender: FDA-Public Use
  Company Number: DE-ROCHE-716374

PATIENT
  Sex: Female
  Weight: 52 kg

DRUGS (2)
  1. PEGINTERFERON ALFA-2A [Suspect]
     Route: 058
     Dates: start: 20100604, end: 20100625
  2. RIBAVIRIN [Suspect]
     Route: 048
     Dates: start: 20100604, end: 20100625

REACTIONS (1)
  - ARTERIOSPASM CORONARY [None]
